FAERS Safety Report 13146470 (Version 1)
Quarter: 2017Q1

REPORT INFORMATION
  Report Type: Report from Study
  Country: FR (occurrence: FR)
  Receive Date: 20170125
  Receipt Date: 20170125
  Transmission Date: 20170428
  Serious: Yes (Hospitalization)
  Sender: FDA-Public Use
  Company Number: FR-ROCHE-1851112

PATIENT
  Age: 70 Year
  Sex: Male
  Weight: 90 kg

DRUGS (11)
  1. ATEZOLIZUMAB [Suspect]
     Active Substance: ATEZOLIZUMAB
     Dosage: RESTARTED
     Route: 042
     Dates: start: 20161207
  2. PULMICORT TURBUHALER [Concomitant]
     Active Substance: BUDESONIDE
     Route: 065
     Dates: start: 1966
  3. FORADIL [Concomitant]
     Active Substance: FORMOTEROL FUMARATE
     Dosage: 2 PUFF
     Route: 065
     Dates: start: 1966
  4. CYS CONTROL [Concomitant]
     Route: 065
     Dates: start: 201408
  5. AERIUS [Concomitant]
     Active Substance: DESLORATADINE
     Route: 065
     Dates: start: 20160502
  6. TAHOR [Concomitant]
     Active Substance: ATORVASTATIN CALCIUM
     Route: 065
     Dates: start: 1995
  7. RO 5509554 (CSF-1R MAB) [Suspect]
     Active Substance: EMACTUZUMAB
     Indication: NEOPLASM
     Dosage: MOST RECENT DOSE PRIOR TO FIRST EPISODE OF IRR AND WORSENING  PARANEOPLASTIC DERMATOMYOSITIS 25/OCT/
     Route: 042
     Dates: start: 20161025, end: 20161110
  8. ATEZOLIZUMAB [Suspect]
     Active Substance: ATEZOLIZUMAB
     Dosage: RESTARTED?TEMPORARILY INTERRUPTED ON 06/DEC/2016 IN RESPONSE TO SECOND EPISODE OF IRR.
     Route: 042
     Dates: start: 20161201, end: 20161206
  9. RO 5509554 (CSF-1R MAB) [Suspect]
     Active Substance: EMACTUZUMAB
     Dosage: RESTARTED?LAST DOSE PRIOR TO SECOND EPISODE OF IRR 06/DEC/2016
     Route: 042
     Dates: start: 20161201, end: 20161206
  10. ATEZOLIZUMAB [Suspect]
     Active Substance: ATEZOLIZUMAB
     Indication: NEOPLASM
     Dosage: MOST RECENT DOSE PRIOR TO FIRST EPISODE OF IRR AND  WORSENING  PARANEOPLASTIC DERMATOMYOSITIS 25/OCT
     Route: 042
     Dates: start: 20161025, end: 20161110
  11. AERIUS [Concomitant]
     Active Substance: DESLORATADINE
     Route: 065
     Dates: start: 201608

REACTIONS (3)
  - Paraneoplastic dermatomyositis [Recovered/Resolved]
  - Infusion related reaction [Recovered/Resolved]
  - Infusion related reaction [Recovered/Resolved]

NARRATIVE: CASE EVENT DATE: 20161025
